FAERS Safety Report 7747613 (Version 3)
Quarter: 2013Q1

REPORT INFORMATION
  Report Type: Spontaneous
  Country: US (occurrence: US)
  Receive Date: 20110104
  Receipt Date: 20130131
  Transmission Date: 20140127
  Serious: Yes (Other)
  Sender: FDA-Public Use
  Company Number: US-PFIZER INC-2010179678

PATIENT
  Age: 54 Year
  Sex: Male
  Weight: 97.05 kg

DRUGS (5)
  1. LYRICA [Suspect]
     Indication: NEURALGIA
     Dosage: 150 MG, 2X/DAY
     Route: 048
     Dates: start: 2008
  2. HYDROCHLOROTHIAZIDE [Interacting]
     Indication: DIURETIC THERAPY
     Dosage: 12.5 MG, 1X/DAY
     Route: 048
     Dates: start: 20101201, end: 201012
  3. HYDROCHLOROTHIAZIDE [Interacting]
     Indication: HEADACHE
  4. LOTREL [Concomitant]
     Indication: HYPERTENSION
     Dosage: UNK
  5. PRILOSEC [Concomitant]
     Dosage: UNK

REACTIONS (5)
  - Blood glucose increased [Recovered/Resolved]
  - Neuralgia [Unknown]
  - Drug interaction [Unknown]
  - Drug ineffective [Unknown]
  - Headache [Unknown]
